FAERS Safety Report 13666865 (Version 1)
Quarter: 2017Q2

REPORT INFORMATION
  Report Type: Spontaneous
  Country: US (occurrence: US)
  Receive Date: 20170619
  Receipt Date: 20170619
  Transmission Date: 20170830
  Serious: No
  Sender: FDA-Public Use
  Company Number: US-ROCHE-1223184

PATIENT
  Age: 74 Year
  Sex: Female

DRUGS (3)
  1. XELODA [Suspect]
     Active Substance: CAPECITABINE
     Indication: PANCREATIC CARCINOMA
     Route: 065
     Dates: start: 20130419
  2. XELODA [Suspect]
     Active Substance: CAPECITABINE
     Indication: CHOLERA
  3. XELODA [Suspect]
     Active Substance: CAPECITABINE
     Indication: LYMPHOMA

REACTIONS (4)
  - Diarrhoea [Recovered/Resolved]
  - Paraesthesia [Not Recovered/Not Resolved]
  - Rash [Recovered/Resolved]
  - Hypoaesthesia [Not Recovered/Not Resolved]

NARRATIVE: CASE EVENT DATE: 20130419
